FAERS Safety Report 8244035-X (Version None)
Quarter: 2012Q1

REPORT INFORMATION
  Report Type: 
  Country: None (occurrence: None)
  Receive Date: 20120329
  Receipt Date: 20120326
  Transmission Date: 20120608
  Serious: Yes (Hospitalization)
  Sender: FDA-Public Use
  Company Number: NO-PFIZER INC-2012078842

PATIENT
  Age: 59 Year
  Sex: Female

DRUGS (2)
  1. ALDACTONE [Suspect]
     Indication: BLOOD ALDOSTERONE INCREASED
     Dosage: 25 MG, UNK
  2. FUROSEMIDE [Suspect]

REACTIONS (1)
  - PNEUMONIA [None]
